FAERS Safety Report 8250655-9 (Version None)
Quarter: 2012Q1

REPORT INFORMATION
  Report Type: 
  Country: None (occurrence: None)
  Receive Date: 20120328
  Receipt Date: 20120321
  Transmission Date: 20120608
  Serious: Yes (Hospitalization)
  Sender: FDA-Public Use
  Company Number: 2012SP015756

PATIENT
  Age: 50 Year
  Sex: Female

DRUGS (5)
  1. BUSPAR [Concomitant]
  2. VALIUM [Concomitant]
  3. TOPAMAX [Concomitant]
  4. SAPHRIS [Suspect]
     Indication: SCHIZOAFFECTIVE DISORDER
     Dosage: 5 MG;BID;SL
     Route: 060
     Dates: start: 20120101
  5. ABILIFY [Concomitant]

REACTIONS (2)
  - VOMITING [None]
  - NAUSEA [None]
